FAERS Safety Report 5356321-1 (Version None)
Quarter: 2007Q2

REPORT INFORMATION
  Report Type: 
  Country: None (occurrence: None)
  Receive Date: 20070613
  Receipt Date: 20070604
  Transmission Date: 20071010
  Serious: Yes (Other)
  Sender: FDA-Public Use
  Company Number: DE-GENENTECH-242677

PATIENT
  Age: 67 Year
  Sex: Male
  Weight: 75 kg

DRUGS (5)
  1. RITUXIMAB [Suspect]
     Indication: MANTLE CELL LYMPHOMA
     Dosage: 700 MG, UNK
     Dates: start: 20060803, end: 20061109
  2. CYCLOPHOSPHAMIDE [Concomitant]
     Indication: MANTLE CELL LYMPHOMA
     Dates: start: 20060803, end: 20061019
  3. DOXORUBICIN HCL [Concomitant]
     Indication: MANTLE CELL LYMPHOMA
     Dates: start: 20060803, end: 20061019
  4. PREDNISONE TAB [Concomitant]
     Indication: MANTLE CELL LYMPHOMA
     Dates: start: 20060803, end: 20061019
  5. VINCRISTINE [Concomitant]
     Indication: MANTLE CELL LYMPHOMA
     Dates: start: 20060803, end: 20061019

REACTIONS (2)
  - FEBRILE NEUTROPENIA [None]
  - THROMBOCYTOPENIA [None]
